FAERS Safety Report 11748504 (Version 2)
Quarter: 2016Q1

REPORT INFORMATION
  Report Type: Spontaneous
  Country: DE (occurrence: DE)
  Receive Date: 20151117
  Receipt Date: 20160219
  Transmission Date: 20160525
  Serious: Yes (Hospitalization)
  Sender: FDA-Public Use
  Company Number: DE-MUNDIPHARMA DS AND PHARMACOVIGILANCE-DEU-2015-0017389

PATIENT
  Sex: Female

DRUGS (7)
  1. OXYGESIC AKUT HARTKAPSELN [Suspect]
     Active Substance: OXYCODONE
     Indication: PAIN
  2. OXYGESIC AKUT HARTKAPSELN [Suspect]
     Active Substance: OXYCODONE
     Indication: BACK PAIN
  3. OXYGESIC AKUT HARTKAPSELN [Suspect]
     Active Substance: OXYCODONE
     Indication: NECK PAIN
  4. TILIDIN [Suspect]
     Active Substance: NALOXONE HYDROCHLORIDE\TILIDINE HYDROCHLORIDE
     Indication: PRODUCT USED FOR UNKNOWN INDICATION
     Dosage: UNK
     Route: 065
     Dates: start: 201510, end: 201510
  5. OXYGESIC AKUT HARTKAPSELN [Suspect]
     Active Substance: OXYCODONE
     Indication: HEADACHE
  6. OXYGESIC AKUT HARTKAPSELN [Suspect]
     Active Substance: OXYCODONE
     Indication: FIBROMYALGIA
     Dosage: 30 MG, BID
     Route: 048
     Dates: start: 20151002, end: 201510
  7. OXYGESIC AKUT HARTKAPSELN [Suspect]
     Active Substance: OXYCODONE
     Indication: CERVICOBRACHIAL SYNDROME

REACTIONS (4)
  - Decreased appetite [Recovered/Resolved]
  - Gastrointestinal motility disorder [Recovered/Resolved]
  - Constipation [Recovered/Resolved]
  - Infrequent bowel movements [Recovered/Resolved with Sequelae]

NARRATIVE: CASE EVENT DATE: 201510
